FAERS Safety Report 11333181 (Version 1)
Quarter: 2015Q3

REPORT INFORMATION
  Report Type: Spontaneous
  Country: US (occurrence: US)
  Receive Date: 20150803
  Receipt Date: 20150803
  Transmission Date: 20151125
  Serious: No
  Sender: FDA-Public Use
  Company Number: US-ELI_LILLY_AND_COMPANY-US200708001358

PATIENT
  Age: 52 Year
  Sex: Male
  Weight: 68.03 kg

DRUGS (5)
  1. ZOLOFT [Concomitant]
     Active Substance: SERTRALINE HYDROCHLORIDE
     Dates: start: 20030227, end: 20050526
  2. ZYPREXA [Suspect]
     Active Substance: OLANZAPINE
     Dates: start: 1999, end: 2005
  3. PAXIL [Concomitant]
     Active Substance: PAROXETINE HYDROCHLORIDE
     Dates: start: 20050711, end: 20061120
  4. SEROQUEL [Concomitant]
     Active Substance: QUETIAPINE FUMARATE
  5. RISPERDAL [Concomitant]
     Active Substance: RISPERIDONE
     Dates: start: 20060907

REACTIONS (4)
  - Blood cholesterol abnormal [Unknown]
  - Myocardial ischaemia [Unknown]
  - Type 2 diabetes mellitus [Not Recovered/Not Resolved]
  - Blood triglycerides increased [Unknown]

NARRATIVE: CASE EVENT DATE: 20060321
